FAERS Safety Report 5623274-8 (Version None)
Quarter: 2008Q1

REPORT INFORMATION
  Report Type: 
  Country: None (occurrence: None)
  Receive Date: 20080115
  Receipt Date: 20070214
  Transmission Date: 20080703
  Serious: Yes (Other)
  Sender: FDA-Public Use
  Company Number: 2007012342

PATIENT
  Sex: Female
  Weight: 81.6 kg

DRUGS (5)
  1. AROMASIN [Suspect]
     Indication: BREAST CANCER
     Dosage: 25 MG (25 MG,1 IN 1 D),ORAL
     Route: 048
     Dates: start: 20061216
  2. ACIPHEX [Concomitant]
  3. TOPROL-XL [Concomitant]
  4. AMBIEN [Concomitant]
  5. MULTI-VITAMINS [Concomitant]

REACTIONS (12)
  - BONE PAIN [None]
  - CONDITION AGGRAVATED [None]
  - DRY SKIN [None]
  - DYSURIA [None]
  - EATING DISORDER [None]
  - FATIGUE [None]
  - GENERALISED OEDEMA [None]
  - HOT FLUSH [None]
  - LYMPHOEDEMA [None]
  - MUSCULAR WEAKNESS [None]
  - SKIN LESION [None]
  - WEIGHT INCREASED [None]
